FAERS Safety Report 9265849 (Version 2)
Quarter: 2013Q2

REPORT INFORMATION
  Report Type: Spontaneous
  Country: BE (occurrence: BE)
  Receive Date: 20130501
  Receipt Date: 20130620
  Transmission Date: 20140414
  Serious: Yes (Hospitalization)
  Sender: FDA-Public Use
  Company Number: BE-GLAXOSMITHKLINE-B0888804A

PATIENT
  Age: 58 Year
  Sex: Female

DRUGS (7)
  1. WELLBUTRIN XR [Suspect]
     Indication: DEPRESSION
     Dosage: 150MG PER DAY
     Route: 048
     Dates: start: 20130412, end: 20130419
  2. TILDIEM [Concomitant]
     Route: 065
  3. MEDROL [Concomitant]
     Route: 065
  4. MARCOUMAR [Concomitant]
     Route: 065
  5. STILNOX (ZOLPIDEM) [Concomitant]
     Route: 065
  6. FORTEO [Concomitant]
     Indication: OSTEOPOROSIS
     Route: 058
     Dates: start: 20130218
  7. CALCIUM + VITAMIN D [Concomitant]
     Route: 065

REACTIONS (11)
  - Epilepsy [Recovered/Resolved]
  - Loss of consciousness [Recovered/Resolved]
  - Hyponatraemia [Recovered/Resolved]
  - Musculoskeletal stiffness [Unknown]
  - Dissociation [Unknown]
  - Fall [Unknown]
  - Hypotonia [Unknown]
  - Lethargy [Unknown]
  - Amnesia [Unknown]
  - Muscle spasms [Unknown]
  - Postictal state [Unknown]
